FAERS Safety Report 5515582-6 (Version None)
Quarter: 2007Q4

REPORT INFORMATION
  Report Type: 
  Country: None (occurrence: None)
  Receive Date: 20071113
  Receipt Date: 20070614
  Transmission Date: 20080405
  Serious: No
  Sender: FDA-Public Use
  Company Number: A0656609A

PATIENT
  Sex: Male

DRUGS (9)
  1. COREG [Suspect]
     Dosage: 6.25MG TWICE PER DAY
     Route: 048
     Dates: start: 20070427
  2. NORVASC [Concomitant]
  3. PREVACID [Concomitant]
  4. HYDROCHLOROTHIAZIDE [Concomitant]
  5. DIGOXIN [Concomitant]
  6. TRICOR [Concomitant]
  7. VYTORIN [Concomitant]
  8. AVAPRO [Concomitant]
  9. ASPIRIN [Concomitant]

REACTIONS (5)
  - ANXIETY [None]
  - DEPRESSION [None]
  - DISTURBANCE IN ATTENTION [None]
  - INSOMNIA [None]
  - MOOD SWINGS [None]
